FAERS Safety Report 8455877-X (Version None)
Quarter: 2012Q2

REPORT INFORMATION
  Report Type: 
  Country: None (occurrence: None)
  Receive Date: 20120621
  Receipt Date: 20120618
  Transmission Date: 20120825
  Serious: Yes (Death)
  Sender: FDA-Public Use
  Company Number: US-ELI_LILLY_AND_COMPANY-US201204001916

PATIENT
  Sex: Female
  Weight: 39.456 kg

DRUGS (3)
  1. FENTANYL [Concomitant]
  2. WARFARIN SODIUM [Concomitant]
  3. GEMZAR [Suspect]
     Indication: BREAST CANCER METASTATIC
     Dosage: 1300 MG, 2 WEEKS AND 2 WEEKS OFF
     Route: 042
     Dates: start: 20110419, end: 20110921

REACTIONS (1)
  - NEOPLASM PROGRESSION [None]
